FAERS Safety Report 9429206 (Version 1)
Quarter: 2013Q3

REPORT INFORMATION
  Report Type: Spontaneous
  Country: US (occurrence: US)
  Receive Date: 20130730
  Receipt Date: 20130730
  Transmission Date: 20140515
  Serious: Yes (Other)
  Sender: FDA-Public Use
  Company Number: US-SANOFI-AVENTIS-2013SA017591

PATIENT
  Age: 55 Year
  Sex: Female

DRUGS (1)
  1. AUBAGIO [Suspect]
     Indication: MULTIPLE SCLEROSIS
     Route: 048
     Dates: start: 20130125, end: 20130422

REACTIONS (7)
  - Lower limb fracture [Not Recovered/Not Resolved]
  - Fall [Not Recovered/Not Resolved]
  - Pain in extremity [Unknown]
  - Feeling hot [Unknown]
  - Neuralgia [Unknown]
  - Burning sensation [Unknown]
  - Alopecia [Not Recovered/Not Resolved]
